FAERS Safety Report 23918720 (Version 1)
Quarter: 2024Q2

REPORT INFORMATION
  Report Type: Spontaneous
  Country: US (occurrence: US)
  Receive Date: 20240530
  Receipt Date: 20240530
  Transmission Date: 20240716
  Serious: Yes (Hospitalization, Other)
  Sender: FDA-Public Use
  Company Number: US-HIKMA PHARMACEUTICALS-US-H14001-24-04548

PATIENT
  Age: 52 Year
  Sex: Male
  Weight: 70.748 kg

DRUGS (14)
  1. AYVAKIT [Suspect]
     Active Substance: AVAPRITINIB
     Dosage: 100 MILLIGRAM, QD
     Route: 048
     Dates: start: 20220330
  2. AYVAKIT [Suspect]
     Active Substance: AVAPRITINIB
     Dosage: 100 MILLIGRAM, QD
     Route: 048
     Dates: start: 20240123
  3. AYVAKIT [Suspect]
     Active Substance: AVAPRITINIB
     Indication: Systemic mastocytosis
     Dosage: 100 MILLIGRAM
     Route: 048
     Dates: start: 20220330, end: 20231005
  4. AYVAKIT [Suspect]
     Active Substance: AVAPRITINIB
     Indication: Indolent systemic mastocytosis
     Dosage: 100 MILLIGRAM, QD
     Route: 048
     Dates: start: 20220330
  5. AYVAKIT [Suspect]
     Active Substance: AVAPRITINIB
     Dosage: 100 MILLIGRAM, QD
     Route: 048
  6. AYVAKIT [Suspect]
     Active Substance: AVAPRITINIB
     Dosage: 25 MILLIGRAM, QD
     Route: 065
  7. AYVAKIT [Suspect]
     Active Substance: AVAPRITINIB
     Dosage: 50 MILLIGRAM, QD
     Route: 065
  8. AYVAKIT [Suspect]
     Active Substance: AVAPRITINIB
     Dosage: UNK
     Route: 065
  9. FENTANYL CITRATE [Suspect]
     Active Substance: FENTANYL CITRATE
     Indication: Pain
     Dosage: UNK
     Route: 042
  10. LEVOCETIRIZINE [Suspect]
     Active Substance: LEVOCETIRIZINE
     Indication: Product used for unknown indication
     Dosage: UNK
     Route: 065
  11. AMOXICILLIN [Concomitant]
     Active Substance: AMOXICILLIN
     Indication: Prophylaxis
     Dosage: UNK
     Route: 065
  12. CETIRIZINE [Concomitant]
     Active Substance: CETIRIZINE HYDROCHLORIDE
     Indication: Product used for unknown indication
     Dosage: UNK
     Route: 065
  13. MAGOX [Concomitant]
     Indication: Product used for unknown indication
     Dosage: 400-600 MILLIGRAM, QD
     Route: 065
  14. XOLAIR [Concomitant]
     Active Substance: OMALIZUMAB
     Indication: Product used for unknown indication
     Dosage: UNK
     Route: 065

REACTIONS (26)
  - Arthropathy [Unknown]
  - Back disorder [Unknown]
  - Back pain [Unknown]
  - Memory impairment [Unknown]
  - Headache [Recovering/Resolving]
  - Adverse drug reaction [Unknown]
  - Hypersensitivity [Unknown]
  - Depressed mood [Unknown]
  - Arthralgia [Unknown]
  - Sacral pain [Unknown]
  - Neck pain [Unknown]
  - Migraine [Unknown]
  - Mean cell haemoglobin increased [Unknown]
  - Mobility decreased [Unknown]
  - Post lumbar puncture syndrome [Recovering/Resolving]
  - Muscle twitching [Unknown]
  - Muscle strain [Unknown]
  - Platelet count abnormal [Not Recovered/Not Resolved]
  - Bone pain [Unknown]
  - Thinking abnormal [Not Recovered/Not Resolved]
  - Tryptase increased [Not Recovered/Not Resolved]
  - Weight decreased [Unknown]
  - Unevaluable event [Unknown]
  - Insomnia [Unknown]
  - Pain [Unknown]
  - Pain in extremity [Unknown]

NARRATIVE: CASE EVENT DATE: 20231201
